FAERS Safety Report 8880704 (Version 13)
Quarter: 2016Q1

REPORT INFORMATION
  Report Type: Spontaneous
  Country: JP (occurrence: JP)
  Receive Date: 20121101
  Receipt Date: 20160122
  Transmission Date: 20160526
  Serious: Yes (Hospitalization, Other)
  Sender: FDA-Public Use
  Company Number: JP-009507513-1210JPN013038

PATIENT
  Age: 36 Year
  Sex: Female

DRUGS (5)
  1. ALENDRONATE SODIUM. [Suspect]
     Active Substance: ALENDRONATE SODIUM
     Indication: PROPHYLAXIS
     Dosage: 5 MG/ DAY
     Route: 048
     Dates: start: 200507, end: 200909
  2. PREDNISOLONE. [Concomitant]
     Active Substance: PREDNISOLONE
     Dosage: GRADUALLY TAPERED TO 14 MG/ DAY
     Route: 048
  3. ANTI-GITR MONOCLONAL ANTIBODY (UNSPECIFIED) [Concomitant]
     Indication: PROPHYLAXIS
  4. CALCIUM LACTATE [Concomitant]
     Active Substance: CALCIUM LACTATE
     Indication: PROPHYLAXIS
     Dosage: 3 G, QD
  5. PREDNISOLONE. [Concomitant]
     Active Substance: PREDNISOLONE
     Indication: PROPHYLAXIS
     Dosage: 40 MG, QD
     Route: 048
     Dates: start: 200507

REACTIONS (9)
  - Internal fixation of fracture [Unknown]
  - Low turnover osteopathy [Recovered/Resolved]
  - Intramedullary rod insertion [Recovered/Resolved]
  - Intramedullary rod insertion [Recovered/Resolved]
  - Atypical femur fracture [Recovered/Resolved]
  - Femur fracture [Recovered/Resolved]
  - Intramedullary rod insertion [Unknown]
  - Fracture delayed union [Recovered/Resolved]
  - Femur fracture [Recovered/Resolved]

NARRATIVE: CASE EVENT DATE: 200901
